FAERS Safety Report 20536404 (Version 1)
Quarter: 2022Q1

REPORT INFORMATION
  Report Type: Spontaneous
  Country: US (occurrence: US)
  Receive Date: 20220302
  Receipt Date: 20220302
  Transmission Date: 20220423
  Serious: Yes (Other)
  Sender: FDA-Public Use
  Company Number: US-STRIDES ARCOLAB LIMITED-2022SP001855

PATIENT
  Age: 7 Decade
  Sex: Female

DRUGS (9)
  1. CINACALCET [Interacting]
     Active Substance: CINACALCET
     Indication: Blood calcium increased
     Dosage: 30 MILLIGRAM, THREE TIMES IN A WEEK
     Route: 048
  2. CINACALCET [Interacting]
     Active Substance: CINACALCET
     Dosage: 30 MILLIGRAM, PER DAY (DOSE INCREASED)
     Route: 048
  3. CINACALCET [Interacting]
     Active Substance: CINACALCET
     Dosage: UNK, (RE-INITIATED)
     Route: 065
  4. HALOPERIDOL [Suspect]
     Active Substance: HALOPERIDOL
     Indication: Schizophrenia
     Dosage: UNK
     Route: 065
  5. RISPERIDONE [Suspect]
     Active Substance: RISPERIDONE
     Indication: Schizophrenia
     Dosage: UNK
     Route: 065
  6. CLOZAPINE [Interacting]
     Active Substance: CLOZAPINE
     Indication: Schizophrenia
     Dosage: 150 MILLIGRAM, EVERY MORNING (400 MILLIGRAM DAILY-150 MG IN THE MORNING AND 250 MG AT BEDTIME)
     Route: 065
  7. CLOZAPINE [Interacting]
     Active Substance: CLOZAPINE
     Dosage: 250 MILLIGRAM, AT BED TIME (400 MILLIGRAM DAILY-150 MG IN THE MORNING AND 250 MG AT BEDTIME)
     Route: 065
  8. CLOZAPINE [Interacting]
     Active Substance: CLOZAPINE
     Dosage: 125 MILLIGRAM, EVERY MORNING (DECREASE IN MORNING DOSE OF 150MG)
     Route: 065
  9. ARIPIPRAZOLE [Concomitant]
     Active Substance: ARIPIPRAZOLE
     Indication: Schizophrenia
     Dosage: UNK
     Route: 065

REACTIONS (3)
  - Drug interaction [Unknown]
  - Torticollis [Recovered/Resolved]
  - Therapy non-responder [Unknown]
